FAERS Safety Report 8966362 (Version 1)
Quarter: 2012Q4

REPORT INFORMATION
  Report Type: 
  Country: IT (occurrence: IT)
  Receive Date: 20121216
  Receipt Date: 20121216
  Transmission Date: 20130627
  Serious: Yes (Other)
  Sender: FDA-Public Use
  Company Number: IT-BRISTOL-MYERS SQUIBB COMPANY-17204991

PATIENT
  Age: 81 Year
  Sex: Male

DRUGS (1)
  1. MITOMYCIN-C [Suspect]
     Indication: BLADDER NEOPLASM
     Dosage: Form:Inj
     Route: 042
     Dates: start: 20120622

REACTIONS (3)
  - Rash generalised [Recovering/Resolving]
  - Erythema [Recovering/Resolving]
  - Pruritus [Recovering/Resolving]
